FAERS Safety Report 8871516 (Version 1)
Quarter: 2012Q4

REPORT INFORMATION
  Report Type: Report from Study
  Country: BR (occurrence: BR)
  Receive Date: 20121030
  Receipt Date: 20121030
  Transmission Date: 20130627
  Serious: Yes (Hospitalization, Other)
  Sender: FDA-Public Use
  Company Number: BR-ABBOTT-12P-020-0998148-00

PATIENT
  Sex: Male
  Weight: 56 kg

DRUGS (7)
  1. HUMIRA [Suspect]
     Indication: CROHN^S DISEASE
     Route: 058
     Dates: start: 2010, end: 201207
  2. HUMIRA [Suspect]
  3. OMEPRAZOLE (NON-ABBOTT) [Concomitant]
     Indication: GASTRIC DISORDER
     Route: 048
     Dates: start: 2010
  4. AZATHIOPRINE (NON-ABBOTT) [Concomitant]
     Indication: CROHN^S DISEASE
     Route: 048
  5. AMITRIPTYLINE HYDROCHLORIDE [Concomitant]
     Indication: ARTHRALGIA
     Route: 048
     Dates: start: 201010
  6. CARBAMAZEPINE [Concomitant]
     Indication: ARTHRALGIA
     Route: 048
     Dates: start: 201010
  7. DIAZEPAM [Concomitant]
     Indication: POLYNEUROPATHY
     Route: 048
     Dates: start: 201010

REACTIONS (2)
  - Abdominal distension [Unknown]
  - Localised intraabdominal fluid collection [Unknown]
